FAERS Safety Report 9434217 (Version 1)
Quarter: 2013Q3

REPORT INFORMATION
  Report Type: Spontaneous
  Country: ZA (occurrence: ZA)
  Receive Date: 20130801
  Receipt Date: 20130801
  Transmission Date: 20140515
  Serious: Yes (Other)
  Sender: FDA-Public Use
  Company Number: ZA-AMGEN-ZAFSP2013053615

PATIENT
  Age: 4 Year
  Sex: Female

DRUGS (3)
  1. ENBREL [Suspect]
     Indication: JUVENILE IDIOPATHIC ARTHRITIS
     Dosage: 25 MG, WEEKLY
     Route: 058
     Dates: start: 20120515
  2. METHOTREXATE SODIUM [Concomitant]
     Dosage: UNK UNK, QWK
     Route: 048
  3. FOLIC ACID [Concomitant]
     Dosage: UNK UNK, QD
     Route: 048

REACTIONS (5)
  - Cough [Unknown]
  - Decreased appetite [Unknown]
  - Malaise [Recovered/Resolved]
  - Respiratory tract infection [Recovered/Resolved]
  - Tuberculosis [Unknown]
